FAERS Safety Report 4569533-1 (Version None)
Quarter: 2005Q1

REPORT INFORMATION
  Report Type: 
  Country: None (occurrence: None)
  Receive Date: 20050203
  Receipt Date: 20050124
  Transmission Date: 20050727
  Serious: Yes (Death, Hospitalization)
  Sender: FDA-Public Use
  Company Number: US-JNJFOC-20041103377

PATIENT
  Sex: Male
  Weight: 113.76 kg

DRUGS (7)
  1. RISPERDAL [Suspect]
     Indication: SCHIZOPHRENIA
     Route: 049
  2. GLUCOTROL [Concomitant]
  3. ACTOSE [Concomitant]
  4. LIPITOR [Concomitant]
  5. ASACOL [Concomitant]
  6. PEPCID [Concomitant]
  7. FLEXERIL [Concomitant]

REACTIONS (2)
  - CROHN'S DISEASE [None]
  - DEATH [None]
